FAERS Safety Report 25461935 (Version 1)
Quarter: 2025Q2

REPORT INFORMATION
  Report Type: Spontaneous
  Country: US (occurrence: None)
  Receive Date: 20250619
  Receipt Date: 20250619
  Transmission Date: 20250716
  Serious: Yes (unspecified)
  Sender: FDA-CTU
  Company Number: None

PATIENT
  Age: 32 Year
  Sex: Male
  Weight: 86.4 kg

DRUGS (5)
  1. DIVALPROEX SODIUM [Suspect]
     Active Substance: DIVALPROEX SODIUM
     Indication: Bipolar disorder
     Dosage: FREQUENCY : DAILY;?
     Route: 048
     Dates: start: 20240328, end: 20250616
  2. Adderall XR 25 and IR 10 [Concomitant]
     Dates: start: 20230530
  3. CYMBALTA [Concomitant]
     Active Substance: DULOXETINE HYDROCHLORIDE
     Dates: start: 20230227
  4. TRAZODONE [Concomitant]
     Active Substance: TRAZODONE HYDROCHLORIDE
     Dates: start: 20230601
  5. Gabapentin 300-600 mg [Concomitant]
     Dates: start: 20250501

REACTIONS (4)
  - Infertility female [None]
  - Semen viscosity decreased [None]
  - Spermatozoa progressive motility decreased [None]
  - Spermatozoa morphology abnormal [None]

NARRATIVE: CASE EVENT DATE: 20250619
